FAERS Safety Report 9894107 (Version 1)
Quarter: 2014Q1

REPORT INFORMATION
  Report Type: Spontaneous
  Country: GB (occurrence: GB)
  Receive Date: 20140213
  Receipt Date: 20140213
  Transmission Date: 20141002
  Serious: Yes (Other)
  Sender: FDA-Public Use
  Company Number: GB-PFIZER INC-2014036774

PATIENT
  Age: 50 Year
  Sex: Female
  Weight: 92.52 kg

DRUGS (4)
  1. VENLAFAXINE HCL [Suspect]
     Indication: DEPRESSION
     Dosage: 150 MG, UNK
     Route: 048
     Dates: start: 2005, end: 2012
  2. ARIPIPRAZOLE [Suspect]
     Indication: DELUSION
     Dosage: 15 MG, UNK
     Route: 048
     Dates: start: 2009, end: 2012
  3. PREGABALIN [Concomitant]
     Dosage: UNK
  4. PROPRANOLOL [Concomitant]
     Dosage: UNK

REACTIONS (7)
  - Drug withdrawal syndrome [Unknown]
  - Mood altered [Recovering/Resolving]
  - Anxiety [Recovering/Resolving]
  - Screaming [Recovering/Resolving]
  - Depression [Recovering/Resolving]
  - Hypomania [Recovering/Resolving]
  - Depersonalisation [Recovering/Resolving]
